FAERS Safety Report 15883702 (Version 2)
Quarter: 2019Q1

REPORT INFORMATION
  Report Type: Spontaneous
  Country: DE (occurrence: DE)
  Receive Date: 20190129
  Receipt Date: 20190212
  Transmission Date: 20190417
  Serious: Yes (Death, Hospitalization)
  Sender: FDA-Public Use
  Company Number: DE-TEVA-2019-DE-1002688

PATIENT
  Age: 93 Year
  Sex: Female

DRUGS (12)
  1. MOXIFLOXACIN. [Suspect]
     Active Substance: MOXIFLOXACIN
     Indication: URINARY TRACT INFECTION
     Dosage: 2 TABLETS (MANUFACTURER UNKNOWN) RECEIVED FROM PHYSICIAN AT A HOME VISIT , AFTERWARDS MOXOFLOXACIN H
     Dates: start: 20181215, end: 201812
  2. ASS PROTECT 100 [Concomitant]
     Active Substance: ASPIRIN
     Indication: ISCHAEMIC HEART DISEASE PROPHYLAXIS
  3. DOMPERIDON-RATIOPHARM 10 MG FILMTABLETTEN [Interacting]
     Active Substance: DOMPERIDONE
     Indication: VOMITING
  4. ASS PROTECT 100 [Concomitant]
     Active Substance: ASPIRIN
     Indication: CEREBROVASCULAR ACCIDENT PROPHYLAXIS
     Dosage: 0-1-0
     Route: 065
     Dates: start: 1997
  5. HEPARIN [Concomitant]
     Active Substance: HEPARIN SODIUM
     Dosage: 50000IU AND 750 ML IN ALTERNATION; 0-1-0
     Route: 065
     Dates: start: 2016
  6. MOXIFLOXACIN HEXAL 400 MG [Interacting]
     Active Substance: MOXIFLOXACIN HYDROCHLORIDE
     Indication: URINARY TRACT INFECTION
     Dosage: 400 MILLIGRAM DAILY;
     Route: 048
     Dates: start: 20181215, end: 20181219
  7. MCP [Concomitant]
     Active Substance: METOCLOPRAMIDE HYDROCHLORIDE
     Indication: ENTERAL NUTRITION
     Dosage: 1-1; LONG-TERM MEDICATION
     Route: 065
     Dates: start: 2016
  8. TORASEMID [Concomitant]
     Active Substance: TORSEMIDE
     Indication: HYPERTENSION
     Dosage: 1/4 TABLET
  9. METOHEXAL [Concomitant]
     Active Substance: METOPROLOL
     Indication: HYPERTENSION
     Dosage: 1/2 TABLET
  10. DOMPERIDON-RATIOPHARM 10 MG FILMTABLETTEN [Interacting]
     Active Substance: DOMPERIDONE
     Indication: NAUSEA
     Route: 048
     Dates: start: 2015, end: 2018
  11. DIAZEPAM. [Suspect]
     Active Substance: DIAZEPAM
     Route: 065
  12. OMEP MUT 20 MG [Concomitant]

REACTIONS (15)
  - Confusional state [Unknown]
  - Mental disorder [Unknown]
  - Abnormal behaviour [Recovering/Resolving]
  - Heart rate increased [Recovering/Resolving]
  - Hallucination [Recovering/Resolving]
  - Psychomotor hyperactivity [Recovering/Resolving]
  - Scatolia [Recovering/Resolving]
  - Panic reaction [Unknown]
  - Crying [Recovering/Resolving]
  - Logorrhoea [Recovering/Resolving]
  - Anxiety disorder [Recovering/Resolving]
  - Pneumonia aspiration [Fatal]
  - Drug interaction [Unknown]
  - Pyrexia [Unknown]
  - Oral discharge [Unknown]

NARRATIVE: CASE EVENT DATE: 201812
